FAERS Safety Report 21521922 (Version 1)
Quarter: 2022Q4

REPORT INFORMATION
  Report Type: Spontaneous
  Country: CA (occurrence: CA)
  Receive Date: 20221028
  Receipt Date: 20221028
  Transmission Date: 20230113
  Serious: Yes (Hospitalization)
  Sender: FDA-Public Use
  Company Number: CA-JNJFOC-20221039504

PATIENT
  Sex: Female
  Weight: 59.7 kg

DRUGS (4)
  1. IMODIUM [Suspect]
     Active Substance: LOPERAMIDE HYDROCHLORIDE
     Indication: Gastrointestinal disorder
     Route: 065
  2. HUMIRA [Suspect]
     Active Substance: ADALIMUMAB
     Indication: Rheumatoid arthritis
     Dosage: 40 MG/ 0.8 ML
     Route: 058
     Dates: start: 20121207
  3. HUMIRA [Suspect]
     Active Substance: ADALIMUMAB
     Indication: Crohn^s disease
  4. LOPERAMIDE HYDROCHLORIDE [Suspect]
     Active Substance: LOPERAMIDE HYDROCHLORIDE
     Indication: Product used for unknown indication
     Route: 065

REACTIONS (38)
  - Dehydration [Unknown]
  - Nasopharyngitis [Unknown]
  - Slow speech [Unknown]
  - Muscle spasms [Unknown]
  - Blood magnesium decreased [Unknown]
  - Blood urea increased [Unknown]
  - Dry throat [Unknown]
  - Hypophagia [Unknown]
  - Feeling abnormal [Unknown]
  - Renal pain [Unknown]
  - Urine output increased [Unknown]
  - Sinus congestion [Unknown]
  - White blood cells urine positive [Unknown]
  - Heart rate increased [Unknown]
  - Anal incontinence [Unknown]
  - Eructation [Unknown]
  - Sinusitis [Unknown]
  - Arthralgia [Unknown]
  - Gastrointestinal disorder [Not Recovered/Not Resolved]
  - Stress [Unknown]
  - Joint stiffness [Unknown]
  - Musculoskeletal stiffness [Not Recovered/Not Resolved]
  - Loss of personal independence in daily activities [Not Recovered/Not Resolved]
  - Fall [Not Recovered/Not Resolved]
  - Clumsiness [Not Recovered/Not Resolved]
  - Sinusitis [Recovered/Resolved]
  - Retching [Unknown]
  - Blood pressure increased [Unknown]
  - Malaise [Unknown]
  - Abdominal pain [Unknown]
  - Diarrhoea [Unknown]
  - Dizziness [Unknown]
  - Drug hypersensitivity [Unknown]
  - Fatigue [Unknown]
  - Somnolence [Unknown]
  - Abdominal distension [Unknown]
  - Nausea [Recovered/Resolved]
  - Off label use [Unknown]

NARRATIVE: CASE EVENT DATE: 20180101
